FAERS Safety Report 4818203-0 (Version None)
Quarter: 2005Q3

REPORT INFORMATION
  Report Type: 
  Country: None (occurrence: None)
  Receive Date: 20050929
  Receipt Date: 20050706
  Transmission Date: 20060218
  Serious: No
  Sender: FDA-Public Use
  Company Number: 04P-163-0272397-00

PATIENT
  Age: 47 Year
  Sex: Female
  Weight: 65.7716 kg

DRUGS (10)
  1. HUMIRA [Suspect]
     Indication: RHEUMATOID ARTHRITIS
     Dosage: 40 MG, 1 IN 2 WK, SUBCUTANEOUS
     Route: 058
     Dates: start: 20040701
  2. LEFLUNOMIDE [Concomitant]
  3. PREDNISONE [Concomitant]
  4. INDOMETHACIN [Concomitant]
  5. ESOMEPRAZOLE [Concomitant]
  6. FEXOFENADINE HYDROCHLORIDE [Concomitant]
  7. IRON [Concomitant]
  8. MULTI-VITAMINS [Concomitant]
  9. CALCITONIN-SALMON [Concomitant]
  10. NAPHCON-A [Concomitant]

REACTIONS (1)
  - SINUSITIS [None]
